FAERS Safety Report 13129619 (Version 6)
Quarter: 2018Q4

REPORT INFORMATION
  Report Type: Spontaneous
  Country: AU (occurrence: AU)
  Receive Date: 20170119
  Receipt Date: 20181227
  Transmission Date: 20190204
  Serious: Yes (Death, Life-Threatening, Hospitalization, Other)
  Sender: FDA-Public Use
  Company Number: PHHY2017AU002831

PATIENT
  Age: 67 Year
  Sex: Female

DRUGS (12)
  1. PREDNISOLON [Suspect]
     Active Substance: PREDNISOLONE
     Indication: IMMUNOSUPPRESSANT DRUG THERAPY
  2. ANIDULAFUNGIN [Suspect]
     Active Substance: ANIDULAFUNGIN
     Indication: FUNGAL ENDOCARDITIS
     Dosage: 100 MG, QD
     Route: 065
  3. VORICONAZOLE. [Suspect]
     Active Substance: VORICONAZOLE
     Indication: FUNGAL ENDOCARDITIS
     Dosage: 200 MG,BID
     Route: 065
     Dates: start: 2014
  4. ANIDULAFUNGIN [Suspect]
     Active Substance: ANIDULAFUNGIN
     Indication: FUNGAEMIA
  5. AZATHIOPRINE. [Suspect]
     Active Substance: AZATHIOPRINE
     Indication: IMMUNOSUPPRESSANT DRUG THERAPY
  6. TACROLIMUS. [Suspect]
     Active Substance: TACROLIMUS
     Indication: IMMUNOSUPPRESSANT DRUG THERAPY
  7. PREDNISOLON [Suspect]
     Active Substance: PREDNISOLONE
     Indication: RENAL TRANSPLANT
     Dosage: 10 MG, QD
     Route: 065
  8. AZATHIOPRINE. [Suspect]
     Active Substance: AZATHIOPRINE
     Indication: RENAL TRANSPLANT
     Dosage: 150 MG, QD
     Route: 065
  9. TACROLIMUS. [Suspect]
     Active Substance: TACROLIMUS
     Indication: RENAL TRANSPLANT
     Dosage: 1 MG, BID
     Route: 065
  10. AMPHOTERICINE B, LIPOSOME [Suspect]
     Active Substance: AMPHOTERICIN B
     Indication: FUNGAL ENDOCARDITIS
     Dosage: 5 MG/KG, QOD
     Route: 065
  11. TERBINAFINE. [Suspect]
     Active Substance: TERBINAFINE
     Indication: FUNGAL ENDOCARDITIS
     Dosage: 250 MG, QD
     Route: 065
  12. TRIMETHOPRIM SULFAMETHOXAZOLE [Concomitant]
     Active Substance: SULFAMETHOXAZOLE\TRIMETHOPRIM
     Indication: ANTIFUNGAL PROPHYLAXIS
     Dosage: UNK
     Route: 065

REACTIONS (21)
  - Cerebral fungal infection [Fatal]
  - Renal failure [Unknown]
  - Fungal skin infection [Fatal]
  - Pulmonary cavitation [Unknown]
  - Hyperreflexia [Unknown]
  - Hypotension [Unknown]
  - Nasal congestion [Unknown]
  - Fungal infection [Fatal]
  - Fungal endocarditis [Fatal]
  - Lung infection [Fatal]
  - Fungaemia [Fatal]
  - Gait disturbance [Unknown]
  - Coma scale abnormal [Unknown]
  - Disorientation [Unknown]
  - Intracardiac mass [Unknown]
  - Performance status decreased [Unknown]
  - Confusional state [Unknown]
  - Oral fungal infection [Unknown]
  - Skin lesion [Unknown]
  - Noninfective encephalitis [Unknown]
  - Drug ineffective [Unknown]

NARRATIVE: CASE EVENT DATE: 2014
